FAERS Safety Report 4361469-4 (Version None)
Quarter: 2004Q2

REPORT INFORMATION
  Report Type: 
  Country: None (occurrence: None)
  Receive Date: 20040521
  Receipt Date: 20030807
  Transmission Date: 20050107
  Serious: No
  Sender: FDA-Public Use
  Company Number: US-GLAXOSMITHKLINE-A0420919A

PATIENT
  Age: 55 Year
  Sex: Male
  Weight: 98.6 kg

DRUGS (3)
  1. ZYBAN [Suspect]
     Dosage: 150MG TWICE PER DAY
     Route: 048
     Dates: start: 20030729, end: 20030806
  2. LIPITOR [Concomitant]
     Route: 065
  3. LOPRESSOR [Concomitant]
     Route: 065

REACTIONS (1)
  - CHEST PAIN [None]
